FAERS Safety Report 15804928 (Version 2)
Quarter: 2019Q2

REPORT INFORMATION
  Report Type: Spontaneous
  Country: CN (occurrence: CN)
  Receive Date: 20190110
  Receipt Date: 20190604
  Transmission Date: 20190711
  Serious: Yes (Hospitalization, Other)
  Sender: FDA-Public Use
  Company Number: CN-ROCHE-2239337

PATIENT
  Age: 54 Year
  Sex: Male

DRUGS (15)
  1. MYCOPHENOLATE MOFETIL. [Suspect]
     Active Substance: MYCOPHENOLATE MOFETIL
     Indication: PROPHYLAXIS AGAINST TRANSPLANT REJECTION
     Route: 048
  2. PREDNISONE. [Concomitant]
     Active Substance: PREDNISONE
     Route: 065
  3. ISONIAZID. [Concomitant]
     Active Substance: ISONIAZID
     Route: 048
  4. METOPROLOL. [Concomitant]
     Active Substance: METOPROLOL
     Route: 065
  5. PREDNISONE. [Concomitant]
     Active Substance: PREDNISONE
     Route: 065
  6. CICLOSPORIN [Concomitant]
     Active Substance: CYCLOSPORINE
     Dosage: EVERY MORNNING
     Route: 065
  7. GANCICLOVIR. [Suspect]
     Active Substance: GANCICLOVIR
     Indication: PRODUCT USED FOR UNKNOWN INDICATION
     Route: 065
  8. MYCOPHENOLATE MOFETIL. [Suspect]
     Active Substance: MYCOPHENOLATE MOFETIL
     Indication: PRODUCT USED FOR UNKNOWN INDICATION
     Route: 048
     Dates: start: 20180421
  9. CYCLOSPORINE. [Concomitant]
     Active Substance: CYCLOSPORINE
     Route: 065
  10. TACROLIMUS. [Concomitant]
     Active Substance: TACROLIMUS
     Dosage: EVERY 12 HOURS
     Route: 065
  11. TACROLIMUS. [Concomitant]
     Active Substance: TACROLIMUS
     Route: 048
     Dates: start: 20180421
  12. CICLOSPORIN [Concomitant]
     Active Substance: CYCLOSPORINE
     Dosage: EVERY NIGHT
     Route: 065
  13. FELODIPINE. [Concomitant]
     Active Substance: FELODIPINE
     Route: 065
  14. MYCOPHENOLATE MOFETIL. [Suspect]
     Active Substance: MYCOPHENOLATE MOFETIL
     Dosage: 0.75G QM, 0.5G QN
     Route: 048
     Dates: start: 20180117
  15. SULFANILAMIDE [Concomitant]
     Active Substance: SULFANILAMIDE
     Route: 048

REACTIONS (5)
  - Glomerulonephritis membranoproliferative [Unknown]
  - Tubulointerstitial nephritis [Unknown]
  - Complications of transplanted kidney [Unknown]
  - Lung infection [Unknown]
  - Proteinuria [Unknown]
